FAERS Safety Report 13883559 (Version 7)
Quarter: 2018Q3

REPORT INFORMATION
  Report Type: Spontaneous
  Country: JP (occurrence: JP)
  Receive Date: 20170819
  Receipt Date: 20180823
  Transmission Date: 20181010
  Serious: Yes (Life-Threatening, Other)
  Sender: FDA-Public Use
  Company Number: JP-009507513-1708JPN001905J

PATIENT
  Age: 59 Year
  Sex: Female
  Weight: 37 kg

DRUGS (4)
  1. KEYTRUDA [Suspect]
     Active Substance: PEMBROLIZUMAB
     Dosage: 200 MG, Q3W
     Route: 041
     Dates: start: 20171017, end: 20180205
  2. KEYTRUDA [Suspect]
     Active Substance: PEMBROLIZUMAB
     Indication: LUNG ADENOCARCINOMA
     Dosage: 200 MG, Q3W
     Route: 041
     Dates: start: 20170623, end: 20170804
  3. OYPALOMIN [Suspect]
     Active Substance: IOPAMIDOL
     Dosage: UNK
     Route: 065
  4. BETAMETHASONE. [Concomitant]
     Active Substance: BETAMETHASONE
     Indication: LUNG ADENOCARCINOMA
     Dosage: 1.0 MG, BID
     Route: 048

REACTIONS (4)
  - Anaemia [Not Recovered/Not Resolved]
  - Eyelid oedema [Recovered/Resolved]
  - Small intestinal haemorrhage [Recovered/Resolved]
  - Small intestinal perforation [Recovered/Resolved]

NARRATIVE: CASE EVENT DATE: 201708
